FAERS Safety Report 8355613-1 (Version None)
Quarter: 2012Q2

REPORT INFORMATION
  Report Type: 
  Country: None (occurrence: None)
  Receive Date: 20120514
  Receipt Date: 20120504
  Transmission Date: 20120825
  Serious: Yes (Hospitalization, Other)
  Sender: FDA-Public Use
  Company Number: US-BIOGENIDEC-2012BI009687

PATIENT
  Age: 69 Year
  Sex: Male
  Weight: 109 kg

DRUGS (14)
  1. NIACIN [Concomitant]
     Route: 048
  2. PIOGLITAZONE [Concomitant]
     Route: 048
  3. ASPIRIN [Concomitant]
     Route: 048
  4. FLAXSEED OIL [Concomitant]
  5. LISINOPRIL [Concomitant]
     Route: 048
  6. VENLAFAXINE [Concomitant]
     Route: 048
  7. TYSABRI [Suspect]
     Indication: MULTIPLE SCLEROSIS
     Route: 042
     Dates: start: 20070219, end: 20120224
  8. METHYLPHENIDATE [Concomitant]
     Indication: FATIGUE
     Route: 048
  9. BACLOFEN [Concomitant]
     Indication: MUSCLE SPASTICITY
     Route: 048
  10. GLYBURIDE [Concomitant]
     Route: 048
  11. GLYBURIDE [Concomitant]
     Route: 048
  12. AMPYRA [Concomitant]
     Indication: GAIT DISTURBANCE
  13. ATORVASTATIN CALCIUM [Concomitant]
     Route: 048
  14. METHYLPHENIDATE [Concomitant]
     Indication: HYPERSOMNIA
     Route: 048

REACTIONS (3)
  - PROGRESSIVE MULTIFOCAL LEUKOENCEPHALOPATHY [None]
  - IMMUNE RECONSTITUTION SYNDROME [None]
  - CONVULSION [None]
